FAERS Safety Report 14838294 (Version 1)
Quarter: 2018Q2

REPORT INFORMATION
  Report Type: Report from Study
  Country: CA (occurrence: CA)
  Receive Date: 20180502
  Receipt Date: 20180502
  Transmission Date: 20180711
  Serious: Yes (Other)
  Sender: FDA-Public Use
  Company Number: CA-GLAXOSMITHKLINE-CA2018GSK074844

PATIENT
  Age: 62 Year
  Sex: Male

DRUGS (10)
  1. LIPITOR [Concomitant]
     Active Substance: ATORVASTATIN CALCIUM
     Indication: PRODUCT USED FOR UNKNOWN INDICATION
     Dosage: UNK
  2. PATADAY [Concomitant]
     Active Substance: OLOPATADINE HYDROCHLORIDE
     Indication: PRODUCT USED FOR UNKNOWN INDICATION
     Dosage: UNK
  3. MEPOLIZUMAB [Suspect]
     Active Substance: MEPOLIZUMAB
     Indication: ASTHMA
     Dosage: 100 MG, Z (MONTHLY)
     Route: 042
  4. IRON ORAL [Suspect]
     Active Substance: IRON
     Indication: PRODUCT USED FOR UNKNOWN INDICATION
     Dosage: UNK
     Route: 048
  5. CANDESARTAN. [Concomitant]
     Active Substance: CANDESARTAN
     Indication: PRODUCT USED FOR UNKNOWN INDICATION
     Dosage: UNK
  6. AVAMYS [Suspect]
     Active Substance: FLUTICASONE FUROATE
     Indication: ASTHMA
     Dosage: 2 PUFF(S), QD
     Route: 045
  7. SINGULAIR [Suspect]
     Active Substance: MONTELUKAST SODIUM
     Indication: PRODUCT USED FOR UNKNOWN INDICATION
     Dosage: 10 MG, QD
  8. SYMBICORT [Suspect]
     Active Substance: BUDESONIDE\FORMOTEROL FUMARATE DIHYDRATE
     Indication: PRODUCT USED FOR UNKNOWN INDICATION
     Dosage: 2 PUFF(S), BID (SYMBICORT 200)
     Route: 055
  9. VENTOLIN [Suspect]
     Active Substance: ALBUTEROL SULFATE
     Indication: ASTHMA
     Dosage: UNK UNK, PRN
  10. NADOLOL. [Concomitant]
     Active Substance: NADOLOL
     Indication: VARICOSE VEIN
     Dosage: 40 MG, QD

REACTIONS (23)
  - Hypoxia [Unknown]
  - Portal hypertensive gastropathy [Unknown]
  - Oedema peripheral [Unknown]
  - Ill-defined disorder [Unknown]
  - Dysgeusia [Unknown]
  - Varicose vein [Unknown]
  - Dyspnoea [Recovering/Resolving]
  - Dizziness [Recovered/Resolved]
  - Hiatus hernia [Unknown]
  - Gastric haemorrhage [Unknown]
  - Faeces discoloured [Unknown]
  - Constipation [Unknown]
  - Haemoglobin decreased [Recovering/Resolving]
  - Cough [Unknown]
  - Asthma [Recovering/Resolving]
  - Drug ineffective [Unknown]
  - Obstructive airways disorder [Unknown]
  - Fatigue [Recovering/Resolving]
  - Gastrooesophageal reflux disease [Unknown]
  - Erythema [Unknown]
  - Nasal inflammation [Unknown]
  - Wheezing [Unknown]
  - Blood test abnormal [Unknown]

NARRATIVE: CASE EVENT DATE: 20170922
